FAERS Safety Report 23669282 (Version 1)
Quarter: 2024Q1

REPORT INFORMATION
  Report Type: Spontaneous
  Country: FR (occurrence: None)
  Receive Date: 20240325
  Receipt Date: 20240325
  Transmission Date: 20240410
  Serious: Yes (Hospitalization)
  Sender: FDA-Public Use
  Company Number: 2024A058928

PATIENT
  Age: 48 Year
  Sex: Male
  Weight: 51 kg

DRUGS (3)
  1. QUETIAPINE FUMARATE [Suspect]
     Active Substance: QUETIAPINE FUMARATE
     Indication: Psychotic disorder
     Route: 048
     Dates: end: 20240225
  2. LOXAPINE [Suspect]
     Active Substance: LOXAPINE
     Indication: Psychotic disorder
     Route: 048
     Dates: end: 20240225
  3. ZUCLOPENTHIXOL [Suspect]
     Active Substance: ZUCLOPENTHIXOL
     Indication: Psychotic disorder
     Dosage: 60 DROPS
     Route: 048
     Dates: end: 20240225

REACTIONS (4)
  - Neuroleptic malignant syndrome [Recovering/Resolving]
  - Decubitus ulcer [Unknown]
  - Dehydration [Recovering/Resolving]
  - CSF protein increased [Unknown]

NARRATIVE: CASE EVENT DATE: 20240225
